FAERS Safety Report 13280496 (Version 1)
Quarter: 2017Q1

REPORT INFORMATION
  Report Type: Report from Study
  Country: CA (occurrence: CA)
  Receive Date: 20170301
  Receipt Date: 20170301
  Transmission Date: 20170428
  Serious: Yes (Other)
  Sender: FDA-Public Use
  Company Number: CA-AMGEN-CANSL2017023780

PATIENT
  Age: 69 Year
  Sex: Female
  Weight: 75 kg

DRUGS (11)
  1. PROLIA [Suspect]
     Active Substance: DENOSUMAB
     Indication: OSTEOPOROSIS
     Dosage: UNK
     Route: 058
     Dates: start: 20140501, end: 20150506
  2. PLAQUENIL [Concomitant]
     Active Substance: HYDROXYCHLOROQUINE SULFATE
  3. VITAMIN D [Concomitant]
     Active Substance: CHOLECALCIFEROL
  4. MTX [Concomitant]
     Active Substance: METHOTREXATE SODIUM
  5. VITALUX [Concomitant]
     Active Substance: MINERALS\VITAMINS
  6. OMEGA 3 FISH OIL [Concomitant]
     Active Substance: FISH OIL\OMEGA-3 FATTY ACIDS
  7. FOLATE [Concomitant]
     Active Substance: FOLATE SODIUM
  8. CALCIUM [Concomitant]
     Active Substance: CALCIUM
  9. VITAMIN C [Concomitant]
     Active Substance: ASCORBIC ACID
  10. KELP [Concomitant]
     Active Substance: KELP
  11. METHOTREXATE. [Concomitant]
     Active Substance: METHOTREXATE

REACTIONS (12)
  - Vertigo [Not Recovered/Not Resolved]
  - Blood cholesterol increased [Unknown]
  - Skin mass [Unknown]
  - Tremor [Not Recovered/Not Resolved]
  - Ear pain [Unknown]
  - Pain in jaw [Unknown]
  - Thyroid disorder [Not Recovered/Not Resolved]
  - Dental care [Unknown]
  - Neck pain [Unknown]
  - Tooth disorder [Not Recovered/Not Resolved]
  - Thyroid mass [Unknown]
  - Pain [Unknown]

NARRATIVE: CASE EVENT DATE: 2016
